FAERS Safety Report 24333762 (Version 1)
Quarter: 2024Q3

REPORT INFORMATION
  Report Type: Spontaneous
  Country: US (occurrence: None)
  Receive Date: 20240918
  Receipt Date: 20240918
  Transmission Date: 20241016
  Serious: No
  Sender: Public
  Company Number: None

PATIENT
  Age: 67 Year
  Sex: Female
  Weight: 69.4 kg

DRUGS (14)
  1. RECLAST [Suspect]
     Active Substance: ZOLEDRONIC ACID
     Indication: Osteopenia
     Dosage: OTHER ROUTE : INTO A VEIN;?
     Route: 050
  2. RECLAST [Suspect]
     Active Substance: ZOLEDRONIC ACID
     Indication: Stress fracture
  3. WIXELA INHUB [Concomitant]
     Active Substance: FLUTICASONE PROPIONATE\SALMETEROL XINAFOATE
  4. LANSOPRAZOLE [Concomitant]
     Active Substance: LANSOPRAZOLE
  5. NASONEX [Concomitant]
     Active Substance: MOMETASONE FUROATE
  6. SINGULAIR [Concomitant]
     Active Substance: MONTELUKAST SODIUM
  7. EFFEXOR [Concomitant]
     Active Substance: VENLAFAXINE HYDROCHLORIDE
  8. FENOFIBRATE [Concomitant]
     Active Substance: FENOFIBRATE
  9. VITAMIN D [Concomitant]
     Active Substance: VITAMIN D NOS
  10. COLACE [Concomitant]
     Active Substance: DOCUSATE SODIUM
  11. PROBIOTICS NOS [Concomitant]
     Active Substance: PROBIOTICS NOS
  12. CALCIUM [Concomitant]
  13. ALLEGRA [Concomitant]
     Active Substance: FEXOFENADINE HYDROCHLORIDE
  14. MAGNESIUM GLYCINATE [Concomitant]
     Active Substance: MAGNESIUM GLYCINATE

REACTIONS (17)
  - Headache [None]
  - Chills [None]
  - Pain [None]
  - Myalgia [None]
  - Nausea [None]
  - Diarrhoea [None]
  - Arthralgia [None]
  - Myalgia [None]
  - Arthralgia [None]
  - Pain in extremity [None]
  - Pain in extremity [None]
  - Infusion related reaction [None]
  - Arthralgia [None]
  - Joint swelling [None]
  - Joint warmth [None]
  - Inadequate analgesia [None]
  - Peripheral swelling [None]

NARRATIVE: CASE EVENT DATE: 20240801
